FAERS Safety Report 18333494 (Version 2)
Quarter: 2020Q4

REPORT INFORMATION
  Report Type: Spontaneous
  Country: US (occurrence: US)
  Receive Date: 20201001
  Receipt Date: 20201009
  Transmission Date: 20210113
  Serious: Yes (Hospitalization, Other)
  Sender: FDA-Public Use
  Company Number: US-ASTRAZENECA-2020SF23407

PATIENT
  Age: 20324 Day
  Sex: Male
  Weight: 103.4 kg

DRUGS (38)
  1. INSULIN [Concomitant]
     Active Substance: INSULIN NOS
  2. MEROPENEM. [Concomitant]
     Active Substance: MEROPENEM
  3. POLYMYXIN [Concomitant]
     Active Substance: POLYMYXIN
  4. JANUMET [Concomitant]
     Active Substance: METFORMIN HYDROCHLORIDE\SITAGLIPTIN PHOSPHATE
  5. FENOFIBRATE. [Concomitant]
     Active Substance: FENOFIBRATE
  6. METRONIDAZOLE. [Concomitant]
     Active Substance: METRONIDAZOLE
  7. METFORMIN [Concomitant]
     Active Substance: METFORMIN HYDROCHLORIDE
  8. VANCOMYCIN [Concomitant]
     Active Substance: VANCOMYCIN
  9. XYLOCAINE [Concomitant]
     Active Substance: LIDOCAINE HYDROCHLORIDE
  10. FARXIGA [Suspect]
     Active Substance: DAPAGLIFLOZIN PROPANEDIOL
     Indication: WEIGHT DECREASED
     Route: 048
     Dates: start: 201502, end: 201809
  11. AMLODIPINE [Concomitant]
     Active Substance: AMLODIPINE BESYLATE
  12. FENTANYL. [Concomitant]
     Active Substance: FENTANYL
  13. HYDROMORPHONE [Concomitant]
     Active Substance: HYDROMORPHONE
  14. GLUCOSE [Concomitant]
     Active Substance: DEXTROSE
  15. FARXIGA [Suspect]
     Active Substance: DAPAGLIFLOZIN PROPANEDIOL
     Indication: WEIGHT DECREASED
     Route: 048
     Dates: start: 20150219
  16. GENTAMICIN. [Concomitant]
     Active Substance: GENTAMICIN
  17. PROPOFOL. [Concomitant]
     Active Substance: PROPOFOL
  18. ERTAPENEM. [Concomitant]
     Active Substance: ERTAPENEM SODIUM
  19. FARXIGA [Suspect]
     Active Substance: DAPAGLIFLOZIN PROPANEDIOL
     Indication: BLOOD PRESSURE DECREASED
     Route: 048
     Dates: start: 201502, end: 201809
  20. HYDROCHLOROTHIAZIDE. [Concomitant]
     Active Substance: HYDROCHLOROTHIAZIDE
  21. POTASSIUM CHLORIDE. [Concomitant]
     Active Substance: POTASSIUM CHLORIDE
  22. ONDANSETRON [Concomitant]
     Active Substance: ONDANSETRON
  23. ZOFRAN [Concomitant]
     Active Substance: ONDANSETRON HYDROCHLORIDE
  24. ATORVASTATIN [Concomitant]
     Active Substance: ATORVASTATIN
  25. CLINDAMYCIN. [Concomitant]
     Active Substance: CLINDAMYCIN
  26. LIDOCAINE. [Concomitant]
     Active Substance: LIDOCAINE
  27. VITAMIN A [Concomitant]
     Active Substance: VITAMIN A
  28. FARXIGA [Suspect]
     Active Substance: DAPAGLIFLOZIN PROPANEDIOL
     Indication: BLOOD PRESSURE DECREASED
     Route: 048
     Dates: start: 20150219
  29. LISINOPRIL. [Concomitant]
     Active Substance: LISINOPRIL
  30. METOPROLOL. [Concomitant]
     Active Substance: METOPROLOL
  31. DOXYCYCLINE. [Concomitant]
     Active Substance: DOXYCYCLINE
  32. HYDRALAZINE [Concomitant]
     Active Substance: HYDRALAZINE HYDROCHLORIDE
  33. VITAMIN C [Concomitant]
     Active Substance: ASCORBIC ACID
  34. FARXIGA [Suspect]
     Active Substance: DAPAGLIFLOZIN PROPANEDIOL
     Indication: TYPE 2 DIABETES MELLITUS
     Route: 048
     Dates: start: 201502, end: 201809
  35. FARXIGA [Suspect]
     Active Substance: DAPAGLIFLOZIN PROPANEDIOL
     Indication: TYPE 2 DIABETES MELLITUS
     Route: 048
     Dates: start: 20150219
  36. HYDROCODONE BITARTRATE. [Concomitant]
     Active Substance: HYDROCODONE BITARTRATE
  37. SODIUM CHLORIDE. [Concomitant]
     Active Substance: SODIUM CHLORIDE
  38. ZINC SULFATE. [Concomitant]
     Active Substance: ZINC SULFATE

REACTIONS (13)
  - Dizziness [Unknown]
  - Abdominal pain [Unknown]
  - Scrotal infection [Unknown]
  - Sepsis [Unknown]
  - Vision blurred [Unknown]
  - Necrotising fasciitis [Unknown]
  - Perineal abscess [Unknown]
  - Scrotal abscess [Unknown]
  - Emotional distress [Unknown]
  - Abscess [Unknown]
  - Headache [Unknown]
  - Fournier^s gangrene [Unknown]
  - Groin abscess [Unknown]

NARRATIVE: CASE EVENT DATE: 20160802
